FAERS Safety Report 11321932 (Version 2)
Quarter: 2015Q3

REPORT INFORMATION
  Report Type: Report from Study
  Country: CA (occurrence: CA)
  Receive Date: 20150729
  Receipt Date: 20150807
  Transmission Date: 20151125
  Serious: No
  Sender: FDA-Public Use
  Company Number: CA-ABBVIE-15P-028-1428082-00

PATIENT
  Sex: Female

DRUGS (2)
  1. HUMIRA [Suspect]
     Active Substance: ADALIMUMAB
     Route: 058
     Dates: start: 20150306
  2. HUMIRA [Suspect]
     Active Substance: ADALIMUMAB
     Indication: CROHN^S DISEASE
     Route: 058
     Dates: start: 20101224, end: 2015

REACTIONS (4)
  - Colonoscopy [Unknown]
  - Arthralgia [Unknown]
  - Aphthous ulcer [Not Recovered/Not Resolved]
  - Psoriasis [Not Recovered/Not Resolved]
